FAERS Safety Report 23347150 (Version 1)
Quarter: 2023Q4

REPORT INFORMATION
  Report Type: Spontaneous
  Country: JP (occurrence: JP)
  Receive Date: 20231228
  Receipt Date: 20231228
  Transmission Date: 20240110
  Serious: Yes (Other)
  Sender: FDA-Public Use
  Company Number: JP-BAYER-2023A184602

PATIENT
  Age: 73 Year
  Sex: Male

DRUGS (9)
  1. IOPAMIRON [Suspect]
     Active Substance: IOPAMIDOL
     Dosage: UNK
     Dates: start: 20231207, end: 20231207
  2. PREDONINE [Concomitant]
     Active Substance: PREDNISOLONE
  3. EZETIMIBE OD [Concomitant]
  4. ASPIRIN [Concomitant]
     Active Substance: ASPIRIN
  5. PEMAFIBRATE [Concomitant]
     Active Substance: PEMAFIBRATE
  6. ROSUVASTATIN [Concomitant]
     Active Substance: ROSUVASTATIN
  7. AZILSARTAN KAMEDOXOMIL [Concomitant]
     Active Substance: AZILSARTAN KAMEDOXOMIL
  8. VONOPRAZAN FUMARATE [Concomitant]
     Active Substance: VONOPRAZAN FUMARATE
  9. ISOSORBIDE DINITRATE [Concomitant]
     Active Substance: ISOSORBIDE DINITRATE

REACTIONS (1)
  - Kounis syndrome [Unknown]

NARRATIVE: CASE EVENT DATE: 20231207
